FAERS Safety Report 6766075-X (Version None)
Quarter: 2010Q2

REPORT INFORMATION
  Report Type: 
  Country: None (occurrence: None)
  Receive Date: 20100611
  Receipt Date: 20100603
  Transmission Date: 20101027
  Serious: Yes (Other)
  Sender: FDA-Public Use
  Company Number: B0660106A

PATIENT
  Age: 85 Year
  Sex: Female
  Weight: 53.8 kg

DRUGS (6)
  1. DEROXAT [Suspect]
     Indication: DRUG USE FOR UNKNOWN INDICATION
     Dosage: 10U PER DAY
     Route: 065
     Dates: start: 20090930, end: 20100318
  2. OMEPRAZOLE [Suspect]
     Indication: DRUG USE FOR UNKNOWN INDICATION
     Dosage: 20MG PER DAY
     Route: 048
     Dates: start: 20070101, end: 20100401
  3. ENALAPRIL MALEATE [Concomitant]
     Dosage: 10MG PER DAY
     Route: 065
  4. NEURONTIN [Concomitant]
     Dosage: 100MG THREE TIMES PER DAY
     Route: 065
     Dates: start: 20040101
  5. DAFALGAN [Concomitant]
     Dosage: 1G THREE TIMES PER DAY
     Route: 065
     Dates: start: 20050101, end: 20100322
  6. TRAMAL [Concomitant]
     Dosage: 5DROP THREE TIMES PER DAY
     Route: 048
     Dates: start: 20090601, end: 20100318

REACTIONS (1)
  - CHOLESTATIC LIVER INJURY [None]
